FAERS Safety Report 4458191-2 (Version None)
Quarter: 2004Q3

REPORT INFORMATION
  Report Type: 
  Country: None (occurrence: None)
  Receive Date: 20040922
  Receipt Date: 20040910
  Transmission Date: 20050211
  Serious: Yes (Hospitalization)
  Sender: FDA-Public Use
  Company Number: 04P-167-0272973-00

PATIENT
  Age: 44 Year
  Sex: Male

DRUGS (8)
  1. EPILIM (DEPACON) (VALPROATE SODIUM) (VALPROATE SODIUM) [Suspect]
     Indication: CONVULSION
     Dosage: 1 GM, 2 IN 1 D, INTRAVENOUS
     Route: 042
     Dates: start: 20040804, end: 20040806
  2. LAMOTRIGINE [Suspect]
     Indication: CONVULSION
     Dosage: 50 MG, 2 IN 1 D, PER ORAL
     Route: 048
     Dates: start: 20040601, end: 20040806
  3. CLARITHROMYCIN [Concomitant]
  4. LANSOPRAZOLE [Concomitant]
  5. LACTULOSE [Concomitant]
  6. SENNA [Concomitant]
  7. DEMECLOCYCLINE [Concomitant]
  8. PARACETAMOL [Concomitant]

REACTIONS (1)
  - SYSTEMIC LUPUS ERYTHEMATOSUS [None]
